FAERS Safety Report 20839810 (Version 2)
Quarter: 2022Q2

REPORT INFORMATION
  Report Type: Spontaneous
  Country: US (occurrence: US)
  Receive Date: 20220517
  Receipt Date: 20220613
  Transmission Date: 20220721
  Serious: No
  Sender: FDA-Public Use
  Company Number: US-PFIZER INC-202200713603

PATIENT
  Age: 59 Year
  Sex: Female
  Weight: 83.9 kg

DRUGS (2)
  1. PAXLOVID [Suspect]
     Active Substance: NIRMATRELVIR\RITONAVIR
     Indication: COVID-19 treatment
     Dosage: 2 DOSES, 2X/DAY FOR 5 DAYS
     Dates: start: 20220503, end: 20220507
  2. LEVOTHYROXINE [Concomitant]
     Active Substance: LEVOTHYROXINE
     Dosage: UNK

REACTIONS (4)
  - Nasal congestion [Recovered/Resolved]
  - Ageusia [Not Recovered/Not Resolved]
  - Diarrhoea [Recovered/Resolved]
  - Anosmia [Unknown]

NARRATIVE: CASE EVENT DATE: 20220503
